FAERS Safety Report 7491664-7 (Version None)
Quarter: 2011Q2

REPORT INFORMATION
  Report Type: 
  Country: None (occurrence: None)
  Receive Date: 20110519
  Receipt Date: 20110510
  Transmission Date: 20111010
  Serious: Yes (Other)
  Sender: FDA-Public Use
  Company Number: BE-ASTRAZENECA-2011SE28014

PATIENT
  Sex: Female

DRUGS (2)
  1. XYLOCAINE [Suspect]
     Route: 014
     Dates: start: 20090101
  2. CORTICOSTEROID [Interacting]
     Route: 014
     Dates: start: 20090101

REACTIONS (2)
  - DRUG INTERACTION [None]
  - PRESYNCOPE [None]
